FAERS Safety Report 13421409 (Version 1)
Quarter: 2017Q2

REPORT INFORMATION
  Report Type: Spontaneous
  Country: US (occurrence: US)
  Receive Date: 20170410
  Receipt Date: 20170410
  Transmission Date: 20170830
  Serious: No
  Sender: FDA-Public Use
  Company Number: US-LUPIN PHARMACEUTICALS INC.-2017-00584

PATIENT
  Sex: Male

DRUGS (6)
  1. LAMOTRIGINE. [Suspect]
     Active Substance: LAMOTRIGINE
     Indication: ANTIDEPRESSANT THERAPY
     Dosage: UNK UNK,UNK,UNKNOWN
     Route: 065
  2. LAMOTRIGINE. [Suspect]
     Active Substance: LAMOTRIGINE
     Dosage: DOSE REDUCED
     Route: 065
  3. LITHIUM. [Suspect]
     Active Substance: LITHIUM
     Indication: ANTIDEPRESSANT THERAPY
     Dosage: UNK UNK,UNK,UNKNOWN
     Route: 065
  4. OLANZAPINE. [Suspect]
     Active Substance: OLANZAPINE
     Indication: ANTIDEPRESSANT THERAPY
     Dosage: UNK UNK,UNK,UNKNOWN
     Route: 065
  5. LORAZEPAM. [Suspect]
     Active Substance: LORAZEPAM
     Indication: ANTIDEPRESSANT THERAPY
     Dosage: UNK UNK,UNK,UNKNOWN
     Route: 065
  6. RISPERIDONE. [Suspect]
     Active Substance: RISPERIDONE
     Indication: ANTIDEPRESSANT THERAPY
     Dosage: UNK UNK,UNK,UNKNOWN
     Route: 065

REACTIONS (5)
  - Fatigue [Recovering/Resolving]
  - Depressed mood [Recovering/Resolving]
  - Somnolence [Recovering/Resolving]
  - Depersonalisation/derealisation disorder [Recovering/Resolving]
  - Adverse drug reaction [Recovering/Resolving]
